FAERS Safety Report 22291677 (Version 2)
Quarter: 2023Q2

REPORT INFORMATION
  Report Type: Spontaneous
  Country: BY (occurrence: BY)
  Receive Date: 20230507
  Receipt Date: 20230516
  Transmission Date: 20230721
  Serious: Yes (Hospitalization)
  Sender: FDA-Public Use
  Company Number: BY-JNJFOC-20230506720

PATIENT
  Age: 48 Year
  Sex: Male
  Weight: 66 kg

DRUGS (7)
  1. SIRTURO [Suspect]
     Active Substance: BEDAQUILINE FUMARATE
     Indication: Tuberculosis
     Route: 048
     Dates: start: 20220721
  2. SIRTURO [Suspect]
     Active Substance: BEDAQUILINE FUMARATE
     Route: 048
     Dates: end: 20230104
  3. LINEZOLID [Suspect]
     Active Substance: LINEZOLID
     Indication: Tuberculosis
     Route: 048
     Dates: start: 20220721
  4. LINEZOLID [Suspect]
     Active Substance: LINEZOLID
     Route: 048
     Dates: start: 20221110, end: 20221231
  5. MOXIFLOXACIN [Suspect]
     Active Substance: MOXIFLOXACIN
     Indication: Tuberculosis
     Route: 048
     Dates: start: 20220721, end: 20230104
  6. PRETOMANID [Suspect]
     Active Substance: PRETOMANID
     Indication: Tuberculosis
     Route: 048
     Dates: start: 20220721, end: 20230104
  7. PYRIDOXINE [Concomitant]
     Active Substance: PYRIDOXINE
     Indication: Prophylaxis
     Route: 065
     Dates: start: 20220721, end: 20230104

REACTIONS (1)
  - Anaemia [Recovered/Resolved with Sequelae]

NARRATIVE: CASE EVENT DATE: 20221109
